FAERS Safety Report 4986598-3 (Version None)
Quarter: 2006Q2

REPORT INFORMATION
  Report Type: 
  Country: None (occurrence: None)
  Receive Date: 20060426
  Receipt Date: 20060405
  Transmission Date: 20061013
  Serious: Yes (Other)
  Sender: FDA-Public Use
  Company Number: CA200603004197

PATIENT
  Sex: Female

DRUGS (3)
  1. HUMATROPE [Suspect]
     Dosage: 0.3 MG, DAILY (1/D), SUBCUTANEOUS
     Route: 058
  2. CORTISONE ACETATE [Concomitant]
  3. THYROXINE ^APS^ (LEVOTHYROXINE SODIUM) [Concomitant]

REACTIONS (2)
  - NEOPLASM PROGRESSION [None]
  - OVARIAN DYSGERMINOMA STAGE UNSPECIFIED [None]
